FAERS Safety Report 13193075 (Version 1)
Quarter: 2017Q1

REPORT INFORMATION
  Report Type: Spontaneous
  Country: US (occurrence: US)
  Receive Date: 20170207
  Receipt Date: 20170207
  Transmission Date: 20170428
  Serious: No
  Sender: FDA-Public Use
  Company Number: US-HORIZON-DUE-0025-2017

PATIENT
  Age: 51 Year
  Sex: Female

DRUGS (3)
  1. MUCINEX [Concomitant]
     Active Substance: GUAIFENESIN
  2. DUEXIS [Suspect]
     Active Substance: FAMOTIDINE\IBUPROFEN
     Indication: LIMB DISCOMFORT
     Dosage: 1 TABLET TWICE DAILY
     Dates: start: 20161114
  3. ZYRTEC [Concomitant]
     Active Substance: CETIRIZINE HYDROCHLORIDE

REACTIONS (5)
  - Inappropriate schedule of drug administration [Recovered/Resolved]
  - Pain in extremity [Recovered/Resolved]
  - Off label use [Recovered/Resolved]
  - Back pain [Recovered/Resolved]
  - Abdominal pain upper [Recovered/Resolved]
